FAERS Safety Report 13632569 (Version 1)
Quarter: 2017Q2

REPORT INFORMATION
  Report Type: Spontaneous
  Country: US (occurrence: US)
  Receive Date: 20170531
  Receipt Date: 20170531
  Transmission Date: 20170830
  Serious: No
  Sender: FDA-Public Use
  Company Number: US-ASTELLAS-1466265

PATIENT
  Age: 47 Year
  Sex: Female

DRUGS (11)
  1. EXCEDRIN (UNITED STATES) [Concomitant]
  2. AMBIEN [Concomitant]
     Active Substance: ZOLPIDEM TARTRATE
  3. ZOFRAN [Concomitant]
     Active Substance: ONDANSETRON HYDROCHLORIDE
  4. OXYCODONE [Concomitant]
     Active Substance: OXYCODONE
  5. KEPPRA [Concomitant]
     Active Substance: LEVETIRACETAM
  6. RANITIDINE. [Concomitant]
     Active Substance: RANITIDINE
  7. BIOTIN [Concomitant]
     Active Substance: BIOTIN
  8. MONODOX [Concomitant]
     Active Substance: DOXYCYCLINE
  9. SENNA [Concomitant]
     Active Substance: SENNA LEAF\SENNOSIDES\SENNOSIDES A AND B
  10. ELAVIL [Concomitant]
     Active Substance: AMITRIPTYLINE HYDROCHLORIDE
  11. TARCEVA [Suspect]
     Active Substance: ERLOTINIB HYDROCHLORIDE
     Indication: PRODUCT USED FOR UNKNOWN INDICATION
     Route: 065
     Dates: start: 20110701

REACTIONS (1)
  - Onychoclasis [Unknown]

NARRATIVE: CASE EVENT DATE: 20140910
